FAERS Safety Report 9670179 (Version 1)
Quarter: 2013Q4

REPORT INFORMATION
  Report Type: Spontaneous
  Country: US (occurrence: None)
  Receive Date: 20131025
  Receipt Date: 20131025
  Transmission Date: 20140711
  Serious: Yes (Other)
  Sender: FDA-Public Use
  Company Number: 2013038504

PATIENT
  Sex: Female

DRUGS (1)
  1. PRIVIGEN [Suspect]
     Route: 042

REACTIONS (2)
  - Migraine [None]
  - Meningitis aseptic [None]
